FAERS Safety Report 9681560 (Version 1)
Quarter: 2013Q4

REPORT INFORMATION
  Report Type: Spontaneous
  Country: US (occurrence: US)
  Receive Date: 20131111
  Receipt Date: 20131111
  Transmission Date: 20140711
  Serious: No
  Sender: FDA-Public Use
  Company Number: US-ENDO PHARMACEUTICALS INC.-CLON20130003

PATIENT
  Sex: 0

DRUGS (1)
  1. CLONIDINE HCL TABLETS [Suspect]
     Indication: DRUG DIVERSION
     Dosage: N/A

REACTIONS (1)
  - Drug diversion [Unknown]
